FAERS Safety Report 11299079 (Version 1)
Quarter: 2015Q3

REPORT INFORMATION
  Report Type: Spontaneous
  Country: US (occurrence: US)
  Receive Date: 20150722
  Receipt Date: 20150722
  Transmission Date: 20151125
  Serious: No
  Sender: FDA-Public Use
  Company Number: US-ELI_LILLY_AND_COMPANY-US201108008882

PATIENT
  Sex: Female

DRUGS (1)
  1. HUMATROPE [Suspect]
     Active Substance: SOMATROPIN
     Indication: HYPOTHALAMO-PITUITARY DISORDER
     Dosage: 0.7 MG, EVERY OTHER DAY

REACTIONS (11)
  - Malaise [Unknown]
  - Diarrhoea [Unknown]
  - Depression [Unknown]
  - Pyrexia [Unknown]
  - Stress [Unknown]
  - Fatigue [Unknown]
  - Arthritis [Unknown]
  - Abdominal discomfort [Unknown]
  - Asthenia [Unknown]
  - Influenza [Unknown]
  - Body dysmorphic disorder [Unknown]
